FAERS Safety Report 23560276 (Version 1)
Quarter: 2024Q1

REPORT INFORMATION
  Report Type: Spontaneous
  Country: CA (occurrence: CA)
  Receive Date: 20240223
  Receipt Date: 20240223
  Transmission Date: 20240410
  Serious: Yes (Hospitalization, Other)
  Sender: FDA-Public Use
  Company Number: CA-TEVA-VS-3159828

PATIENT
  Age: 14 Year
  Sex: Male
  Weight: 118 kg

DRUGS (1)
  1. IBUPROFEN [Suspect]
     Active Substance: IBUPROFEN
     Route: 048

REACTIONS (5)
  - Abdominal pain [Recovered/Resolved]
  - Acute kidney injury [Recovered/Resolved]
  - Blood creatinine abnormal [Recovered/Resolved]
  - Gastritis [Recovered/Resolved]
  - Tubulointerstitial nephritis [Recovered/Resolved]
